FAERS Safety Report 10075873 (Version 1)
Quarter: 2014Q2

REPORT INFORMATION
  Report Type: Report from Study
  Country: US (occurrence: US)
  Receive Date: 20140414
  Receipt Date: 20140414
  Transmission Date: 20141212
  Serious: Yes (Other)
  Sender: FDA-Public Use
  Company Number: US-ROCHE-1377822

PATIENT
  Sex: Female
  Weight: 56.75 kg

DRUGS (7)
  1. LUCENTIS [Suspect]
     Indication: RETINAL VEIN OCCLUSION
     Dosage: RIGHT EYE
     Route: 050
     Dates: start: 2012
  2. AVASTIN [Suspect]
     Indication: RETINAL VEIN OCCLUSION
     Dosage: INJECTION RIGHT EYE
     Route: 050
     Dates: start: 201207
  3. LOSARTAN [Concomitant]
     Indication: BLOOD PRESSURE
     Route: 048
     Dates: start: 201303
  4. HCTZ [Concomitant]
     Indication: BLOOD PRESSURE
     Route: 048
     Dates: start: 201303
  5. LEVOTHYROXINE [Concomitant]
     Route: 048
  6. XANAX [Concomitant]
     Indication: STRESS
     Route: 048
  7. XANAX [Concomitant]
     Indication: PANIC ATTACK

REACTIONS (6)
  - Ocular hyperaemia [Recovered/Resolved]
  - Eye swelling [Recovered/Resolved]
  - Eye discharge [Recovered/Resolved]
  - Drug ineffective [Unknown]
  - Pain [Recovered/Resolved]
  - Foreign body sensation in eyes [Unknown]
